FAERS Safety Report 6967863-7 (Version None)
Quarter: 2010Q3

REPORT INFORMATION
  Report Type: 
  Country: None (occurrence: None)
  Receive Date: 20100907
  Receipt Date: 20100331
  Transmission Date: 20110219
  Serious: Yes (Other)
  Sender: FDA-Public Use
  Company Number: A0852918A

PATIENT
  Age: 64 Year
  Sex: Female

DRUGS (3)
  1. ROPINIROLE [Suspect]
     Indication: PARKINSON'S DISEASE
     Dosage: 12MG VARIABLE DOSE
     Route: 048
     Dates: end: 20100326
  2. SINEMET [Concomitant]
  3. LEXAPRO [Concomitant]

REACTIONS (1)
  - HALLUCINATION [None]
